FAERS Safety Report 7090599-1 (Version None)
Quarter: 2010Q4

REPORT INFORMATION
  Report Type: 
  Country: None (occurrence: None)
  Receive Date: 20101109
  Receipt Date: 20080903
  Transmission Date: 20110411
  Serious: No
  Sender: FDA-Public Use
  Company Number: US-KINGPHARMUSA00001-K200801037

PATIENT
  Sex: Female

DRUGS (1)
  1. EPIPEN JR. [Suspect]
     Dosage: .15 MG, SINGLE
     Dates: start: 20080903, end: 20080903

REACTIONS (4)
  - ACCIDENTAL EXPOSURE [None]
  - INJECTION SITE DISCOLOURATION [None]
  - INJECTION SITE PALLOR [None]
  - INJECTION SITE PARAESTHESIA [None]
